FAERS Safety Report 8448252-5 (Version None)
Quarter: 2012Q2

REPORT INFORMATION
  Report Type: 
  Country: None (occurrence: None)
  Receive Date: 20120619
  Receipt Date: 20120424
  Transmission Date: 20120825
  Serious: No
  Sender: FDA-Public Use
  Company Number: US-FOUGERA-2012FO001080

PATIENT
  Sex: Female

DRUGS (1)
  1. IMIQUIMOD [Suspect]
     Indication: ACTINIC KERATOSIS
     Dates: end: 20120401

REACTIONS (1)
  - OROPHARYNGEAL PAIN [None]
